FAERS Safety Report 9742664 (Version 2)
Quarter: 2013Q4

REPORT INFORMATION
  Report Type: Spontaneous
  Country: US (occurrence: US)
  Receive Date: 20131210
  Receipt Date: 20131210
  Transmission Date: 20140711
  Serious: Yes (Hospitalization)
  Sender: FDA-Public Use
  Company Number: US-GILEAD-2009-0024781

PATIENT
  Sex: Female
  Weight: 51.44 kg

DRUGS (20)
  1. LETAIRIS [Suspect]
     Indication: PULMONARY ARTERIAL HYPERTENSION
     Route: 048
     Dates: start: 20070809
  2. OXYGEN [Concomitant]
  3. REMODULIN [Concomitant]
  4. WARFARIN SODIUM [Concomitant]
  5. ADCIRCA [Concomitant]
  6. CIALIS [Concomitant]
  7. SODIUM CHLORIDE [Concomitant]
  8. LORAZEPAM [Concomitant]
  9. FUROSEMIDE [Concomitant]
  10. PULMICORT [Concomitant]
  11. DIGOXIN [Concomitant]
  12. LITHIUM CARBONATE [Concomitant]
  13. CONCERTA [Concomitant]
  14. LAMICTAL [Concomitant]
  15. FOLIC ACID [Concomitant]
  16. FERROUS SULFATE [Concomitant]
  17. COLACE [Concomitant]
  18. METOCLOPRAMIDE [Concomitant]
  19. MIRALAX [Concomitant]
  20. BISCODYL [Concomitant]

REACTIONS (1)
  - Abdominal pain [Unknown]
